FAERS Safety Report 6641417-4 (Version None)
Quarter: 2010Q1

REPORT INFORMATION
  Report Type: 
  Country: None (occurrence: None)
  Receive Date: 20100317
  Receipt Date: 20100317
  Transmission Date: 20100710
  Serious: Yes (Hospitalization, Other)
  Sender: FDA-Public Use
  Company Number: None

PATIENT
  Age: 19 Year
  Sex: Female
  Weight: 77.3 kg

DRUGS (2)
  1. SPRINTEC [Suspect]
     Indication: CONTRACEPTION
     Dosage: 28 DAY REGIMEN 1 DAILY
     Dates: start: 20090630
  2. TRIPHASIL-21 [Suspect]
     Indication: CONTRACEPTION
     Dosage: 28 DAY REGIMEN 1 DAILY
     Dates: start: 20090713

REACTIONS (1)
  - MASS [None]
